FAERS Safety Report 7100078-0 (Version None)
Quarter: 2010Q4

REPORT INFORMATION
  Report Type: 
  Country: None (occurrence: None)
  Receive Date: 20101112
  Receipt Date: 20100512
  Transmission Date: 20110411
  Serious: No
  Sender: FDA-Public Use
  Company Number: A0810578A

PATIENT
  Age: 85 Year
  Sex: Male

DRUGS (10)
  1. COREG [Suspect]
     Dosage: 80MG PER DAY
     Route: 048
     Dates: start: 20050101
  2. COREG CR [Suspect]
     Indication: HYPERTENSION
     Route: 048
     Dates: start: 20060101
  3. IMDUR [Concomitant]
  4. PREDNISONE [Concomitant]
  5. GEMFIBROZIL [Concomitant]
  6. WARFARIN [Concomitant]
  7. FUROSEMIDE [Concomitant]
  8. KLOR-CON [Concomitant]
  9. VITAMINS [Concomitant]
  10. FISH OIL [Concomitant]

REACTIONS (5)
  - BACK PAIN [None]
  - FATIGUE [None]
  - MUSCULAR WEAKNESS [None]
  - PAIN IN EXTREMITY [None]
  - RESPIRATORY DISORDER [None]
